FAERS Safety Report 9124448 (Version 2)
Quarter: 2013Q1

REPORT INFORMATION
  Report Type: Spontaneous
  Country: GB (occurrence: GB)
  Receive Date: 20130116
  Receipt Date: 20130328
  Transmission Date: 20140127
  Serious: Yes (Other)
  Sender: FDA-Public Use
  Company Number: PHFR2012GB006634

PATIENT
  Age: 58 Year
  Sex: Female

DRUGS (5)
  1. CLOZARIL [Suspect]
     Indication: SCHIZOPHRENIA
     Dosage: UNK
     Route: 048
     Dates: start: 20011231
  2. CLOZARIL [Suspect]
     Dosage: 500 MG, UNK
     Route: 048
  3. METFORMIN [Concomitant]
     Dosage: 500 MG, BID
     Route: 048
  4. SIMVASTATIN [Concomitant]
     Dosage: 40 MG, UNK
     Route: 048
  5. VENLAFAXIN [Concomitant]
     Dosage: 225 MG, UNK
     Route: 048

REACTIONS (2)
  - Schizophrenia [Recovered/Resolved]
  - Differential white blood cell count abnormal [Unknown]
